FAERS Safety Report 7986341-X (Version None)
Quarter: 2011Q4

REPORT INFORMATION
  Report Type: 
  Country: None (occurrence: None)
  Receive Date: 20111216
  Receipt Date: 20110915
  Transmission Date: 20120403
  Serious: No
  Sender: FDA-Public Use
  Company Number: US-BRISTOL-MYERS SQUIBB COMPANY-15896285

PATIENT
  Age: 21 Year
  Sex: Male

DRUGS (4)
  1. CLONAZEPAM [Suspect]
  2. ABILIFY [Suspect]
     Indication: DEPRESSION
     Dosage: 10MG TABS X 2:1B66109B,EXP DATE:NOV2012 5MG TABS X 2:0K62677C,EXP DATE:OCT2012
     Route: 048
  3. VYVANSE [Suspect]
  4. ABILIFY [Suspect]
     Indication: BIPOLAR DISORDER
     Dosage: 10MG TABS X 2:1B66109B,EXP DATE:NOV2012 5MG TABS X 2:0K62677C,EXP DATE:OCT2012
     Route: 048

REACTIONS (4)
  - TREMOR [None]
  - TOOTHACHE [None]
  - VOMITING [None]
  - HYPERHIDROSIS [None]
